FAERS Safety Report 21147325 (Version 1)
Quarter: 2022Q3

REPORT INFORMATION
  Report Type: Spontaneous
  Country: US (occurrence: US)
  Receive Date: 20220729
  Receipt Date: 20220729
  Transmission Date: 20221027
  Serious: Yes (Other)
  Sender: FDA-Public Use
  Company Number: US-JNJFOC-20220742106

PATIENT
  Sex: Male

DRUGS (2)
  1. VISINE DRY EYE RELIEF EYE DROPS [Suspect]
     Active Substance: POLYETHYLENE GLYCOL 400
     Indication: Eye pruritus
     Dosage: 2 DROPS ONCE
     Route: 047
     Dates: start: 20220719
  2. VISINE DRY EYE RELIEF EYE DROPS [Suspect]
     Active Substance: POLYETHYLENE GLYCOL 400
     Indication: Dry eye

REACTIONS (2)
  - Eye haemorrhage [Not Recovered/Not Resolved]
  - Ocular hyperaemia [Not Recovered/Not Resolved]

NARRATIVE: CASE EVENT DATE: 20220719
